FAERS Safety Report 19245102 (Version 3)
Quarter: 2021Q2

REPORT INFORMATION
  Report Type: Spontaneous
  Country: NZ (occurrence: NZ)
  Receive Date: 20210511
  Receipt Date: 20210527
  Transmission Date: 20210717
  Serious: Yes (Hospitalization, Other)
  Sender: FDA-Public Use
  Company Number: NZ-009507513-2007NZL009503

PATIENT
  Age: 27 Year
  Sex: Female

DRUGS (3)
  1. IPILIMUMAB [Concomitant]
     Active Substance: IPILIMUMAB
     Indication: METASTATIC MALIGNANT MELANOMA
     Dosage: UNK
     Dates: start: 2021
  2. KEYTRUDA [Suspect]
     Active Substance: PEMBROLIZUMAB
     Indication: METASTATIC MALIGNANT MELANOMA
     Dosage: TWICE EVERY THREE WEEKS
     Route: 042
  3. KEYTRUDA [Suspect]
     Active Substance: PEMBROLIZUMAB
     Dosage: TWICE EVERY THREE WEEKS
     Route: 042

REACTIONS (14)
  - Tumour ulceration [Unknown]
  - Drug ineffective [Unknown]
  - Intra-abdominal fluid collection [Unknown]
  - Tumour haemorrhage [Unknown]
  - Malignant neoplasm progression [Unknown]
  - Pain [Unknown]
  - Adverse event [Unknown]
  - Adverse drug reaction [Unknown]
  - Abdominal pain upper [Unknown]
  - Inappropriate schedule of product administration [Unknown]
  - Infected neoplasm [Unknown]
  - Dizziness [Unknown]
  - Radiation associated pain [Unknown]
  - Fatigue [Unknown]

NARRATIVE: CASE EVENT DATE: 201912
